FAERS Safety Report 4835701-4 (Version None)
Quarter: 2005Q4

REPORT INFORMATION
  Report Type: 
  Country: None (occurrence: None)
  Receive Date: 20051121
  Receipt Date: 20051116
  Transmission Date: 20060501
  Serious: Yes (Other)
  Sender: FDA-Public Use
  Company Number: 200510378BFR

PATIENT
  Age: 66 Year
  Sex: Male

DRUGS (3)
  1. MOXIFLOXACIN HYDROCHLORIDE [Suspect]
     Indication: SINUSITIS
     Dosage: 400 MG, TOTAL DAILY, ORAL
     Route: 048
     Dates: start: 20050523, end: 20050524
  2. AVLOCARDYL [Concomitant]
  3. TAVANIC [Concomitant]

REACTIONS (1)
  - VISUAL FIELD DEFECT [None]
